FAERS Safety Report 9527194 (Version 1)
Quarter: 2013Q3

REPORT INFORMATION
  Report Type: Report from Study
  Country: NL (occurrence: NL)
  Receive Date: 20130916
  Receipt Date: 20130916
  Transmission Date: 20140515
  Serious: Yes (Other)
  Sender: FDA-Public Use
  Company Number: NL-ABBVIE-13P-114-1145771-00

PATIENT
  Age: 72 Year
  Sex: Male
  Weight: 81 kg

DRUGS (8)
  1. LUCRIN DEPOT [Suspect]
     Indication: PROSTATE CANCER
     Route: 058
     Dates: start: 20120402
  2. NITRO [Concomitant]
     Indication: ANGINA PECTORIS
     Route: 060
     Dates: start: 2011
  3. FUROSEMIDE [Concomitant]
     Indication: DIURETIC THERAPY
     Dosage: 1 TIME DAILY
     Route: 048
     Dates: start: 2011
  4. ACENOCOUMAROL [Concomitant]
     Indication: ANGINA PECTORIS
     Dosage: ACCORDING TO SCHEDULE
     Route: 048
     Dates: start: 2011
  5. ACETYLSALICYLIC ACID [Concomitant]
     Indication: ANGINA PECTORIS
     Dosage: 1 TIME DAILY
     Route: 048
     Dates: start: 2011
  6. BISOPROLOL [Concomitant]
     Indication: CARDIAC DISORDER
     Dosage: 2 TIMES DAILY
     Route: 048
  7. ENALAPRIL [Concomitant]
     Indication: CARDIAC DISORDER
     Dosage: 1 TIME DAILY
     Route: 048
  8. ADALAT OROS [Concomitant]
     Indication: CARDIAC DISORDER
     Dosage: 1 TIME DAILY
     Route: 048

REACTIONS (8)
  - Aortic surgery [Unknown]
  - Weight increased [Not Recovered/Not Resolved]
  - Dyspnoea [Not Recovered/Not Resolved]
  - Hyperhidrosis [Not Recovered/Not Resolved]
  - Mood swings [Not Recovered/Not Resolved]
  - Asthenia [Not Recovered/Not Resolved]
  - Anger [Not Recovered/Not Resolved]
  - Aggression [Not Recovered/Not Resolved]
